FAERS Safety Report 12253373 (Version 1)
Quarter: 2016Q2

REPORT INFORMATION
  Report Type: Spontaneous
  Country: US (occurrence: US)
  Receive Date: 20160411
  Receipt Date: 20160411
  Transmission Date: 20160815
  Serious: No
  Sender: FDA-Public Use
  Company Number: US-PFIZER INC-2016203493

PATIENT
  Age: 67 Year
  Sex: Male

DRUGS (6)
  1. NIACIN. [Suspect]
     Active Substance: NIACIN
     Dosage: UNK
  2. CELESTONE [Suspect]
     Active Substance: BETAMETHASONE
     Dosage: UNK
  3. METFORMIN [Suspect]
     Active Substance: METFORMIN HYDROCHLORIDE
     Dosage: UNK
  4. CORTISONE ACETATE. [Suspect]
     Active Substance: CORTISONE ACETATE
     Dosage: UNK
  5. NIASPAN [Suspect]
     Active Substance: NIACIN
     Dosage: UNK
  6. ONGLYZA [Suspect]
     Active Substance: SAXAGLIPTIN HYDROCHLORIDE
     Dosage: UNK

REACTIONS (1)
  - Drug hypersensitivity [Unknown]
